FAERS Safety Report 16283152 (Version 1)
Quarter: 2019Q2

REPORT INFORMATION
  Report Type: Spontaneous
  Country: RU (occurrence: RU)
  Receive Date: 20190507
  Receipt Date: 20190507
  Transmission Date: 20190711
  Serious: Yes (Hospitalization, Other)
  Sender: FDA-Public Use
  Company Number: RU-ASTRAZENECA-2019SE66235

PATIENT
  Sex: Male
  Weight: 89 kg

DRUGS (9)
  1. CHONDROITIN SULFATE SODIUM [Concomitant]
     Active Substance: CHONDROITIN SULFATE (CHICKEN)
  2. JANUVIA [Concomitant]
     Active Substance: SITAGLIPTIN PHOSPHATE
  3. IBUPROFEN. [Concomitant]
     Active Substance: IBUPROFEN
  4. METFORMIN [Concomitant]
     Active Substance: METFORMIN HYDROCHLORIDE
  5. GLICLAZIDE [Concomitant]
     Active Substance: GLICLAZIDE
  6. DUSPATALIN [Concomitant]
     Active Substance: MEBEVERINE HYDROCHLORIDE
  7. FORXIGA [Suspect]
     Active Substance: DAPAGLIFLOZIN
     Indication: TYPE 2 DIABETES MELLITUS
     Route: 048
  8. PERINEVA [Concomitant]
     Active Substance: PERINDOPRIL ERBUMINE
  9. CONCOR [Concomitant]
     Active Substance: BISOPROLOL FUMARATE

REACTIONS (12)
  - Head injury [Recovered/Resolved]
  - Ear injury [Recovered/Resolved]
  - Fall [Recovered/Resolved]
  - Contusion [Recovered/Resolved]
  - Cerebral disorder [Not Recovered/Not Resolved]
  - Polyneuropathy [Not Recovered/Not Resolved]
  - Back injury [Recovered/Resolved]
  - Cerebral cyst [Not Recovered/Not Resolved]
  - Headache [Not Recovered/Not Resolved]
  - Paraesthesia [Not Recovered/Not Resolved]
  - Spinal column injury [Recovered/Resolved]
  - Hypoaesthesia [Not Recovered/Not Resolved]
